FAERS Safety Report 15034680 (Version 1)
Quarter: 2018Q2

REPORT INFORMATION
  Report Type: Spontaneous
  Country: US (occurrence: US)
  Receive Date: 20180620
  Receipt Date: 20180620
  Transmission Date: 20180711
  Serious: Yes (Hospitalization)
  Sender: FDA-Public Use
  Company Number: US-ALEMBIC PHARMACUETICALS LIMITED-2018SCAL000434

PATIENT

DRUGS (2)
  1. LITHIUM CARBONATE. [Suspect]
     Active Substance: LITHIUM CARBONATE
     Indication: BIPOLAR DISORDER
     Dosage: UNK
  2. LITHIUM CARBONATE. [Suspect]
     Active Substance: LITHIUM CARBONATE
     Dosage: DOSE INCREASED

REACTIONS (9)
  - Disorientation [Recovering/Resolving]
  - Antipsychotic drug level increased [Recovering/Resolving]
  - Mental status changes [Recovering/Resolving]
  - Diarrhoea [Unknown]
  - Aggression [Recovering/Resolving]
  - Confusional state [Recovering/Resolving]
  - Vomiting [Unknown]
  - Toxicity to various agents [Recovering/Resolving]
  - Leukocytosis [Recovering/Resolving]
